FAERS Safety Report 8131267-4 (Version None)
Quarter: 2012Q1

REPORT INFORMATION
  Report Type: 
  Country: None (occurrence: None)
  Receive Date: 20120210
  Receipt Date: 20120210
  Transmission Date: 20120608
  Serious: Yes (Hospitalization)
  Sender: FDA-Public Use
  Company Number: None

PATIENT
  Age: 78 Year
  Sex: Male
  Weight: 80 kg

DRUGS (1)
  1. ACETAMINOPHEN AND HYDROCODONE BITARTRATE [Suspect]
     Indication: PAIN
     Dosage: 1-2 TAB PRN PO
     Route: 048
     Dates: start: 20111214, end: 20111219

REACTIONS (8)
  - CONSTIPATION [None]
  - TOE AMPUTATION [None]
  - STAPHYLOCOCCAL BACTERAEMIA [None]
  - DIARRHOEA [None]
  - ABDOMINAL PAIN [None]
  - NAUSEA [None]
  - HAEMATOCHEZIA [None]
  - ABDOMINAL DISTENSION [None]
